FAERS Safety Report 14526250 (Version 1)
Quarter: 2018Q1

REPORT INFORMATION
  Report Type: Spontaneous
  Country: CZ (occurrence: CZ)
  Receive Date: 20180213
  Receipt Date: 20180213
  Transmission Date: 20180509
  Serious: Yes (Disabling)
  Sender: FDA-Public Use
  Company Number: CZ-AUROBINDO-AUR-APL-2018-006779

PATIENT
  Age: 32 Year
  Sex: Male
  Weight: 87 kg

DRUGS (9)
  1. RIBAVIRIN FILM COATED TABLETS [Suspect]
     Active Substance: RIBAVIRIN
     Indication: CHRONIC HEPATITIS C
     Dosage: 2-0-3
     Route: 048
     Dates: start: 20170601, end: 20170618
  2. OMEPRAZOL                          /00661201/ [Concomitant]
     Active Substance: OMEPRAZOLE
     Indication: DYSPEPSIA
     Dosage: 40 MG, DAILY
     Route: 048
  3. VIEKIRAX [Suspect]
     Active Substance: OMBITASVIR\PARITAPREVIR\RITONAVIR
     Indication: CHRONIC HEPATITIS C
     Dosage: 2-0-0
     Route: 048
     Dates: start: 20170601, end: 20170826
  4. NEUROL                             /00595201/ [Concomitant]
     Active Substance: ALPRAZOLAM
     Indication: INSOMNIA
     Dosage: 1 MG, AT THE BEGINNING 1 TABLET
     Route: 048
     Dates: start: 20170619, end: 20170828
  5. CITALOPRAM [Concomitant]
     Active Substance: CITALOPRAM HYDROBROMIDE
     Indication: MENTAL DISORDER
     Dosage: 10 MG, DAILY
     Route: 048
  6. EXVIERA [Suspect]
     Active Substance: DASABUVIR
     Indication: CHRONIC HEPATITIS C
     Dosage: 1-0-1
     Route: 048
     Dates: start: 20170601, end: 20170826
  7. NEUROL                             /00595201/ [Concomitant]
     Active Substance: ALPRAZOLAM
     Dosage: 1 MG, 2-3 TABLETS PER DAY
     Dates: start: 20170829
  8. RIBAVIRIN FILM COATED TABLETS [Suspect]
     Active Substance: RIBAVIRIN
     Indication: HEPATITIS C
     Dosage: 1-0-2 , TABLET
     Route: 048
     Dates: start: 20170619, end: 20170816
  9. STILNOX [Concomitant]
     Active Substance: ZOLPIDEM TARTRATE
     Indication: INSOMNIA
     Dosage: 10 MG, DAILY
     Route: 048
     Dates: start: 20170601, end: 20170617

REACTIONS (3)
  - Mental disorder [Not Recovered/Not Resolved]
  - Drug dependence [Unknown]
  - Insomnia [Unknown]

NARRATIVE: CASE EVENT DATE: 20170608
